FAERS Safety Report 5819651-2 (Version None)
Quarter: 2008Q3

REPORT INFORMATION
  Report Type: 
  Country: None (occurrence: None)
  Receive Date: 20080723
  Receipt Date: 20080701
  Transmission Date: 20090109
  Serious: No
  Sender: FDA-Public Use
  Company Number: US-BOEHRINGER INGELHEIM GMBH, GERMANY-2008-BP-10440BP

PATIENT
  Sex: Female

DRUGS (8)
  1. MICARDIS [Suspect]
     Indication: HYPERTENSION
     Route: 048
     Dates: start: 20070228
  2. COREG [Suspect]
     Indication: HYPERTENSION
     Route: 048
     Dates: start: 20070227
  3. LIPITOR [Concomitant]
     Indication: BLOOD CHOLESTEROL INCREASED
  4. NASONEX [Concomitant]
  5. LISINOPRIL AND HYDROCHLOROTHIAZIDE [Concomitant]
     Indication: HYPERTENSION
  6. MULTI-VITAMIN [Concomitant]
  7. VERAPAMIL [Concomitant]
     Indication: HYPERTENSION
     Dates: end: 20070228
  8. ATENOLOL [Concomitant]
     Indication: HYPERTENSION
     Dates: end: 20070228

REACTIONS (5)
  - COUGH [None]
  - DIARRHOEA [None]
  - DIZZINESS [None]
  - DRUG INEFFECTIVE [None]
  - SINUS CONGESTION [None]
